FAERS Safety Report 16966207 (Version 1)
Quarter: 2019Q4

REPORT INFORMATION
  Report Type: Spontaneous
  Country: US (occurrence: US)
  Receive Date: 20191028
  Receipt Date: 20191028
  Transmission Date: 20200122
  Serious: Yes (Hospitalization)
  Sender: FDA-Public Use
  Company Number: US-ALKERMES INC.-ALK-2019-005603

PATIENT
  Age: 39 Year
  Sex: Female
  Weight: 70.3 kg

DRUGS (5)
  1. PROZAC [Concomitant]
     Active Substance: FLUOXETINE HYDROCHLORIDE
     Indication: PRODUCT USED FOR UNKNOWN INDICATION
     Dosage: 40 MG, QAM
     Route: 048
  2. VIVITROL [Suspect]
     Active Substance: NALTREXONE
     Indication: ALCOHOLISM
     Dosage: 380 MG, QMO
     Route: 030
     Dates: start: 201904, end: 201904
  3. VIVITROL [Suspect]
     Active Substance: NALTREXONE
     Dosage: 380 MG, QMO
     Route: 030
  4. TRAZODONE [Concomitant]
     Active Substance: TRAZODONE HYDROCHLORIDE
     Indication: PRODUCT USED FOR UNKNOWN INDICATION
     Dosage: 200 MG, QHS
     Route: 048
  5. BUSPAR [Concomitant]
     Active Substance: BUSPIRONE HYDROCHLORIDE
     Indication: PRODUCT USED FOR UNKNOWN INDICATION
     Dosage: 30 MG, QD
     Route: 048

REACTIONS (14)
  - Hospitalisation [Recovered/Resolved]
  - Hemiparaesthesia [Not Recovered/Not Resolved]
  - Injection site induration [Unknown]
  - Seizure [Unknown]
  - Injection site mass [Recovered/Resolved]
  - Injection site pain [Unknown]
  - White blood cell count increased [Unknown]
  - Injection site reaction [Unknown]
  - Tobacco abuse [Recovered/Resolved]
  - Alcoholism [Recovered/Resolved]
  - General physical health deterioration [Not Recovered/Not Resolved]
  - Therapeutic response decreased [Unknown]
  - Hypoaesthesia [Not Recovered/Not Resolved]
  - Injection site erythema [Recovered/Resolved]
